FAERS Safety Report 8177009-8 (Version None)
Quarter: 2012Q1

REPORT INFORMATION
  Report Type: 
  Country: None (occurrence: None)
  Receive Date: 20120301
  Receipt Date: 20120224
  Transmission Date: 20120608
  Serious: Yes (Hospitalization)
  Sender: FDA-Public Use
  Company Number: US-JNJFOC-20120213296

PATIENT
  Sex: Female
  Weight: 81.65 kg

DRUGS (5)
  1. TRAMADOL HCL [Suspect]
     Indication: BREAKTHROUGH PAIN
     Dosage: 100 MG ONCE DAILY
     Route: 048
     Dates: end: 20120215
  2. TRAMADOL HCL [Suspect]
     Indication: NEUROPATHY PERIPHERAL
     Dosage: 50MG/ 6 HOURS AFTER 100MG AS NEEDED
     Route: 048
  3. TRAMADOL HCL [Suspect]
     Dosage: 100 MG ONCE DAILY
     Route: 048
     Dates: end: 20120215
  4. TRAMADOL HCL [Suspect]
     Dosage: 50MG/ 6 HOURS AFTER 100MG AS NEEDED
     Route: 048
  5. SULINDAC [Suspect]
     Indication: PRODUCT USED FOR UNKNOWN INDICATION
     Route: 065
     Dates: start: 20091201, end: 20091201

REACTIONS (4)
  - BREAKTHROUGH PAIN [None]
  - RENAL FAILURE [None]
  - ADVERSE EVENT [None]
  - PRODUCT QUALITY ISSUE [None]
